FAERS Safety Report 6386401-3 (Version None)
Quarter: 2009Q3

REPORT INFORMATION
  Report Type: 
  Country: None (occurrence: None)
  Receive Date: 20090930
  Receipt Date: 20090930
  Transmission Date: 20100115
  Serious: Yes (Other)
  Sender: FDA-Public Use
  Company Number: None

PATIENT
  Age: 32 Year
  Sex: Female
  Weight: 79.3795 kg

DRUGS (1)
  1. LAMOTRIGINE [Suspect]
     Indication: BIPOLAR II DISORDER
     Dosage: 100MG 2X DAILY PO
     Route: 048
     Dates: start: 20090905, end: 20090930

REACTIONS (3)
  - DEPRESSION [None]
  - FEAR [None]
  - PRODUCT SUBSTITUTION ISSUE [None]
